FAERS Safety Report 6012284-7 (Version None)
Quarter: 2008Q4

REPORT INFORMATION
  Report Type: 
  Country: None (occurrence: None)
  Receive Date: 20081218
  Receipt Date: 20081027
  Transmission Date: 20090506
  Serious: No
  Sender: FDA-Public Use
  Company Number: US-ASTRAZENECA-2008UW23926

PATIENT
  Age: 88 Year
  Sex: Female
  Weight: 61.2 kg

DRUGS (6)
  1. SYMBICORT [Suspect]
     Indication: ASTHMA
     Dosage: 160/4.5, 2 PUFFS TWICE DAILY
     Route: 055
     Dates: start: 20081023
  2. SYMBICORT [Suspect]
     Indication: HYPERSENSITIVITY
     Dosage: 160/4.5, 2 PUFFS TWICE DAILY
     Route: 055
     Dates: start: 20081023
  3. PREDNISOLONE [Concomitant]
  4. LODINE [Concomitant]
  5. MEGESTROL ACETATE [Concomitant]
  6. IPRATROPIUM BROMIDE [Concomitant]
     Route: 045

REACTIONS (1)
  - EYELID OEDEMA [None]
